FAERS Safety Report 22389653 (Version 1)
Quarter: 2023Q2

REPORT INFORMATION
  Report Type: Report from Study
  Country: CO (occurrence: CO)
  Receive Date: 20230531
  Receipt Date: 20230531
  Transmission Date: 20230722
  Serious: Yes (Other)
  Sender: FDA-Public Use
  Company Number: CO-TAKEDA-2023TUS053640

PATIENT
  Age: 61 Year
  Sex: Male
  Weight: 75 kg

DRUGS (1)
  1. VEDOLIZUMAB [Suspect]
     Active Substance: VEDOLIZUMAB
     Indication: Crohn^s disease
     Dosage: 300 MILLIGRAM
     Route: 042
     Dates: start: 20220207

REACTIONS (5)
  - Iridocyclitis [Recovering/Resolving]
  - Weight increased [Unknown]
  - Abdominal pain [Unknown]
  - Abdominal distension [Unknown]
  - Arthralgia [Unknown]

NARRATIVE: CASE EVENT DATE: 20230529
